FAERS Safety Report 5724942-X (Version None)
Quarter: 2008Q2

REPORT INFORMATION
  Report Type: 
  Country: None (occurrence: None)
  Receive Date: 20080430
  Receipt Date: 20080430
  Transmission Date: 20081010
  Serious: Yes (Life-Threatening)
  Sender: FDA-Public Use
  Company Number: None

PATIENT
  Age: 16 Year
  Sex: Male
  Weight: 99.7913 kg

DRUGS (1)
  1. SINGULAIR [Suspect]
     Indication: ASTHMA
     Dosage: 1 DAILY
     Dates: start: 20070901, end: 20080320

REACTIONS (5)
  - ANGER [None]
  - APATHY [None]
  - EDUCATIONAL PROBLEM [None]
  - FRUSTRATION [None]
  - MOOD ALTERED [None]
